FAERS Safety Report 13595071 (Version 1)
Quarter: 2017Q2

REPORT INFORMATION
  Report Type: Spontaneous
  Country: CA (occurrence: CA)
  Receive Date: 20170531
  Receipt Date: 20170531
  Transmission Date: 20170830
  Serious: Yes (Other)
  Sender: FDA-Public Use
  Company Number: CA-AMGEN-CANSP2017080352

PATIENT
  Age: 64 Year
  Sex: Male

DRUGS (2)
  1. PROLIA [Suspect]
     Active Substance: DENOSUMAB
     Indication: BRAIN NEOPLASM
     Dosage: 2 DF (120 MG), UNK
     Route: 065
     Dates: start: 20170412
  2. PROLIA [Suspect]
     Active Substance: DENOSUMAB
     Indication: LUNG DISORDER

REACTIONS (2)
  - Wrong drug administered [Unknown]
  - Off label use [Unknown]

NARRATIVE: CASE EVENT DATE: 20170412
